FAERS Safety Report 12521959 (Version 1)
Quarter: 2016Q3

REPORT INFORMATION
  Report Type: Other
  Country: IE (occurrence: IE)
  Receive Date: 20160701
  Receipt Date: 20160701
  Transmission Date: 20161109
  Serious: Yes (Other)
  Sender: FDA-Public Use
  Company Number: IE-ASTELLAS-2016US023785

PATIENT
  Age: 41 Year
  Sex: Female

DRUGS (2)
  1. BETMIGA [Suspect]
     Active Substance: MIRABEGRON
     Indication: HYPERTONIC BLADDER
     Route: 065
     Dates: start: 201605
  2. IMPLANON [Concomitant]
     Active Substance: ETONOGESTREL
     Indication: PRODUCT USED FOR UNKNOWN INDICATION
     Dosage: UNK UNK, UNKNOWN FREQ.
     Route: 065

REACTIONS (11)
  - Dilated pores [Not Recovered/Not Resolved]
  - Dyspnoea [Not Recovered/Not Resolved]
  - Nausea [Not Recovered/Not Resolved]
  - Urticaria [Not Recovered/Not Resolved]
  - Dry skin [Not Recovered/Not Resolved]
  - Dermatitis infected [Not Recovered/Not Resolved]
  - Eyelid oedema [Not Recovered/Not Resolved]
  - Rash [Not Recovered/Not Resolved]
  - Throat tightness [Not Recovered/Not Resolved]
  - Swelling face [Not Recovered/Not Resolved]
  - Cough [Not Recovered/Not Resolved]
